FAERS Safety Report 4634958-2 (Version None)
Quarter: 2005Q2

REPORT INFORMATION
  Report Type: 
  Country: None (occurrence: None)
  Receive Date: 20050411
  Receipt Date: 20050328
  Transmission Date: 20051028
  Serious: Yes (Hospitalization, Disabling)
  Sender: FDA-Public Use
  Company Number: 2005021857

PATIENT
  Age: 66 Year
  Sex: Female
  Weight: 49.8957 kg

DRUGS (1)
  1. ZYVOX [Suspect]
     Indication: URINARY TRACT INFECTION STAPHYLOCOCCAL
     Dosage: 600 MG (600 MG , DAILY)
     Dates: start: 20041201, end: 20041201

REACTIONS (6)
  - DISEASE PROGRESSION [None]
  - MUSCLE SPASMS [None]
  - PARALYSIS [None]
  - RECALL PHENOMENON [None]
  - SENSORY DISTURBANCE [None]
  - SPINAL DISORDER [None]
